FAERS Safety Report 5918901-1 (Version None)
Quarter: 2008Q3

REPORT INFORMATION
  Report Type: 
  Country: None (occurrence: None)
  Receive Date: 20080909
  Receipt Date: 20070717
  Transmission Date: 20090109
  Serious: Yes (Disabling, Other)
  Sender: FDA-Public Use
  Company Number: 163-20785-07061154

PATIENT
  Age: 36 Year
  Sex: Female
  Weight: 113.3993 kg

DRUGS (13)
  1. THALOMID [Suspect]
     Indication: MULTIPLE MYELOMA
     Dosage: 2 IN 1 D, ORAL
     Route: 048
     Dates: start: 20051001, end: 20060401
  2. VELCADE [Concomitant]
  3. NEURONTIN [Concomitant]
  4. BACLOFEN [Concomitant]
  5. ELAVIL [Concomitant]
  6. COUMADIN [Concomitant]
  7. REMERON [Concomitant]
  8. PEPCID [Concomitant]
  9. ZELNORM [Concomitant]
  10. RESTORIL [Concomitant]
  11. REGLAN [Concomitant]
  12. DILAUDID [Concomitant]
  13. CELEXA [Concomitant]

REACTIONS (2)
  - OEDEMA PERIPHERAL [None]
  - PAIN IN EXTREMITY [None]
